APPROVED DRUG PRODUCT: SYNERCID
Active Ingredient: DALFOPRISTIN; QUINUPRISTIN
Strength: 420MG/VIAL;180MG/VIAL
Dosage Form/Route: INJECTABLE;INTRAVENOUS
Application: N050748 | Product #002
Applicant: KING PHARMACEUTICALS INC
Approved: Aug 24, 2000 | RLD: No | RS: No | Type: DISCN